FAERS Safety Report 20669254 (Version 1)
Quarter: 2022Q2

REPORT INFORMATION
  Report Type: Spontaneous
  Country: US (occurrence: US)
  Receive Date: 20220404
  Receipt Date: 20220404
  Transmission Date: 20220720
  Serious: Yes (Hospitalization, Other)
  Sender: FDA-Public Use
  Company Number: US-GLAXOSMITHKLINE-US2022GSK059208

PATIENT
  Age: 30 Year
  Sex: Female

DRUGS (5)
  1. BELIMUMAB [Suspect]
     Active Substance: BELIMUMAB
     Indication: Immunosuppression
     Dosage: MONTHLY INFUSIONS
  2. BELIMUMAB [Suspect]
     Active Substance: BELIMUMAB
     Dosage: WEEKLY
     Route: 058
  3. METHOTREXATE [Concomitant]
     Active Substance: METHOTREXATE
     Indication: Immunosuppression
     Dosage: UNK
  4. MYCOPHENOLIC ACID [Concomitant]
     Active Substance: MYCOPHENOLIC ACID
     Indication: Immunosuppression
     Dosage: UNK
  5. HYDROXYCHLOROQUINE [Concomitant]
     Active Substance: HYDROXYCHLOROQUINE
     Indication: Immunosuppression
     Dosage: UNK

REACTIONS (14)
  - Pancreatitis acute [Unknown]
  - Abdominal pain upper [Unknown]
  - Lipase increased [Unknown]
  - Pancreatitis [Unknown]
  - Pancreatitis necrotising [Unknown]
  - Pancreatic pseudocyst [Unknown]
  - Condition aggravated [Unknown]
  - Vocal cord paralysis [Unknown]
  - Respiratory failure [Unknown]
  - Hypertransaminasaemia [Unknown]
  - Diverticulitis [Unknown]
  - Intestinal perforation [Unknown]
  - Cutaneous vasculitis [Unknown]
  - Drug ineffective [Unknown]
